FAERS Safety Report 5327784-2 (Version None)
Quarter: 2007Q1

REPORT INFORMATION
  Report Type: 
  Country: None (occurrence: None)
  Receive Date: 20070226
  Receipt Date: 20061206
  Transmission Date: 20070707
  Serious: Yes (Other)
  Sender: FDA-Public Use
  Company Number: WAES 0612USA01276

PATIENT
  Age: 65 Year
  Sex: Female

DRUGS (3)
  1. VYTORIN [Suspect]
     Indication: BLOOD CHOLESTEROL INCREASED
     Dosage: 10-10 MG/DAILY/PO
     Route: 048
     Dates: end: 20061101
  2. FOSAMAX [Concomitant]
  3. LEVOXYL [Concomitant]

REACTIONS (1)
  - HEPATIC ENZYME INCREASED [None]
